FAERS Safety Report 11539535 (Version 1)
Quarter: 2015Q3

REPORT INFORMATION
  Report Type: Spontaneous
  Country: GB (occurrence: GB)
  Receive Date: 20150923
  Receipt Date: 20150923
  Transmission Date: 20151125
  Serious: Yes (Other)
  Sender: FDA-Public Use
  Company Number: GB-WATSON-2015-20143

PATIENT
  Age: 61 Year
  Sex: Male
  Weight: 73 kg

DRUGS (7)
  1. SIMVASTATIN (UNKNOWN) [Suspect]
     Active Substance: SIMVASTATIN
     Indication: PRODUCT USED FOR UNKNOWN INDICATION
     Dosage: UNK
     Route: 065
     Dates: start: 20140129
  2. NOVORAPID [Concomitant]
     Active Substance: INSULIN ASPART
     Indication: PRODUCT USED FOR UNKNOWN INDICATION
     Dosage: UNK; USE AS DIRECTED
     Route: 065
     Dates: start: 20140917
  3. GLUCAGON. [Concomitant]
     Active Substance: GLUCAGON
     Indication: PRODUCT USED FOR UNKNOWN INDICATION
     Dosage: UNK; USE AS DIRECTED
     Route: 065
     Dates: start: 20131227
  4. LANTUS [Concomitant]
     Active Substance: INSULIN GLARGINE
     Indication: PRODUCT USED FOR UNKNOWN INDICATION
     Dosage: UNK; USE AS DIRECTED
     Route: 065
     Dates: start: 20140917
  5. SILDENAFIL. [Concomitant]
     Active Substance: SILDENAFIL
     Indication: PRODUCT USED FOR UNKNOWN INDICATION
     Dosage: UNK; USE AS DIRECTED
     Route: 065
     Dates: start: 20140917
  6. METFORMIN [Concomitant]
     Active Substance: METFORMIN HYDROCHLORIDE
     Indication: PRODUCT USED FOR UNKNOWN INDICATION
     Dosage: 2 DF, BID
     Route: 065
     Dates: start: 20070611
  7. CETIRIZINE [Concomitant]
     Active Substance: CETIRIZINE HYDROCHLORIDE
     Indication: PRODUCT USED FOR UNKNOWN INDICATION
     Dosage: 1 DF, DAILY
     Route: 065
     Dates: start: 20150819

REACTIONS (1)
  - Gynaecomastia [Recovered/Resolved]
